FAERS Safety Report 23107881 (Version 2)
Quarter: 2023Q4

REPORT INFORMATION
  Report Type: Spontaneous
  Country: GB (occurrence: GB)
  Receive Date: 20231026
  Receipt Date: 20231108
  Transmission Date: 20240109
  Serious: Yes (Hospitalization)
  Sender: FDA-Public Use
  Company Number: GB-TEVA-2023-GB-2937890

PATIENT
  Sex: Female

DRUGS (10)
  1. PROCYCLIDINE [Suspect]
     Active Substance: PROCYCLIDINE
     Indication: Tardive dyskinesia
     Dosage: 7.5 MILLIGRAM DAILY; THREE TIMES A DAY
     Route: 065
  2. RISPERIDONE [Suspect]
     Active Substance: RISPERIDONE
     Indication: Schizophrenia
     Dosage: INITIAL DOSE: UNKNOWN
     Route: 065
     Dates: start: 1997
  3. RISPERIDONE [Suspect]
     Active Substance: RISPERIDONE
     Dosage: 4 MILLIGRAM DAILY; AT NIGHT
     Route: 065
  4. RISPERIDONE [Suspect]
     Active Substance: RISPERIDONE
     Dosage: 3 MILLIGRAM DAILY; AT NIGHT FOR 3 MONTHS
     Route: 065
  5. RISPERIDONE [Suspect]
     Active Substance: RISPERIDONE
     Dosage: 2 MILLIGRAM DAILY; AT NIGHT.
     Route: 065
  6. RISPERIDONE [Suspect]
     Active Substance: RISPERIDONE
     Dosage: 3 MILLIGRAM DAILY; AT NIGHT
     Route: 065
  7. HERBALS\PLANTAGO OVATA SEED [Concomitant]
     Active Substance: HERBALS\PLANTAGO OVATA SEED
     Indication: Constipation
     Route: 065
  8. BECLOMETHASONE DIPROPIONATE [Concomitant]
     Active Substance: BECLOMETHASONE DIPROPIONATE
     Indication: Asthma
     Route: 065
  9. TETRABENAZINE [Concomitant]
     Active Substance: TETRABENAZINE
     Indication: Tardive dyskinesia
     Route: 065
  10. CLONAZEPAM [Concomitant]
     Active Substance: CLONAZEPAM
     Indication: Tardive dyskinesia
     Dosage: DOSE FLUCTUATED BETWEEN 250MCG ONCE DAILY AND 250MCG THREE TIMES A DAYS
     Route: 065

REACTIONS (3)
  - Tardive dyskinesia [Recovering/Resolving]
  - Dystonia [Recovering/Resolving]
  - Tic [Recovering/Resolving]
